FAERS Safety Report 20714867 (Version 1)
Quarter: 2022Q2

REPORT INFORMATION
  Report Type: Spontaneous
  Country: US (occurrence: US)
  Receive Date: 20220415
  Receipt Date: 20220415
  Transmission Date: 20220720
  Serious: No
  Sender: FDA-Public Use
  Company Number: US-ALLERGAN-2118824US

PATIENT
  Age: 36 Year
  Sex: Female

DRUGS (6)
  1. LILETTA [Suspect]
     Active Substance: LEVONORGESTREL
     Indication: Contraception
     Dosage: 52 MG, SINGLE
     Route: 015
     Dates: start: 20210503, end: 20210503
  2. FISH OIL [Concomitant]
     Active Substance: FISH OIL
  3. COLACE [Concomitant]
     Active Substance: DOCUSATE SODIUM
  4. ADVIL [Concomitant]
     Active Substance: IBUPROFEN
  5. SYNTHROID [Concomitant]
     Active Substance: LEVOTHYROXINE SODIUM
  6. MICRONOR [Concomitant]
     Active Substance: NORETHINDRONE
     Indication: Contraception

REACTIONS (1)
  - Procedural pain [Unknown]

NARRATIVE: CASE EVENT DATE: 20210503
